FAERS Safety Report 23860862 (Version 2)
Quarter: 2024Q2

REPORT INFORMATION
  Report Type: Spontaneous
  Country: US (occurrence: US)
  Receive Date: 20240516
  Receipt Date: 20240605
  Transmission Date: 20240716
  Serious: Yes (Death, Life-Threatening, Hospitalization, Other)
  Sender: FDA-Public Use
  Company Number: US-009507513-2405USA002683

PATIENT
  Sex: Male
  Weight: 87.2 kg

DRUGS (26)
  1. KEYTRUDA [Suspect]
     Active Substance: PEMBROLIZUMAB
     Indication: Renal cell carcinoma
     Dosage: 400 MILLIGRAM, EVERY 6 WEEKS (ALSO REPORTED AS EVERY 42 DAYS [Q42 DAYS]) FOR UP TO ONE YEAR
     Route: 042
     Dates: start: 20240328, end: 20240328
  2. ATENOLOL [Concomitant]
     Active Substance: ATENOLOL
     Dosage: 25 MILLIGRAM, QD
     Route: 048
     Dates: start: 20240122
  3. METFORMIN [Concomitant]
     Active Substance: METFORMIN HYDROCHLORIDE
     Dosage: 1 TABLET, QD
     Route: 048
     Dates: start: 20240122
  4. AMLODIPINE [Concomitant]
     Active Substance: AMLODIPINE BESYLATE
     Dosage: 10 MILLIGRAM, QD
     Route: 048
     Dates: start: 20240122
  5. APIXABAN [Concomitant]
     Active Substance: APIXABAN
  6. ELIQUIS [Concomitant]
     Active Substance: APIXABAN
     Dosage: 1 TABLET (5MG TOTAL); FREQ: BID
     Route: 048
     Dates: start: 20240216, end: 20240502
  7. VITAMIN C [Concomitant]
     Active Substance: ASCORBIC ACID
     Dosage: 1000 MILLIGRAM, QD
     Route: 048
  8. ASPIRIN [Concomitant]
     Active Substance: ASPIRIN
     Dosage: 81 MILLIGRAM, QD; FORMULATION: TABLET
     Route: 048
  9. ASPIRIN [Concomitant]
     Active Substance: ASPIRIN
     Dosage: 81 MILLIGRAM, QD; FORMULATION: CAPSULE
     Route: 048
     Dates: start: 20240122
  10. TENORMIN [Concomitant]
     Active Substance: ATENOLOL
     Dosage: 25 MILLIGRAM, QD
     Route: 048
  11. CALCIUM\VITAMIN D [Concomitant]
     Active Substance: CALCIUM\VITAMIN D
     Dosage: 1 TABLET, QD; STRENGTH: 600-400 TABLET
     Route: 048
  12. CARBOXYMETHYLCELLULOSE [Concomitant]
     Active Substance: CARBOXYMETHYLCELLULOSE
     Dosage: 1 DROP INTO BOTH EYES, PRN
     Route: 031
  13. KEFLEX [Concomitant]
     Active Substance: CEPHALEXIN
     Dosage: 500 MILLIGRAM, ONCE
     Route: 048
     Dates: start: 20221214, end: 20240502
  14. KEFLEX [Concomitant]
     Active Substance: CEPHALEXIN
     Dosage: 500 MILLIGRAM, ONCE
     Route: 048
     Dates: start: 20230210, end: 20240502
  15. DIETARY SUPPLEMENT\UBIDECARENONE [Concomitant]
     Active Substance: DIETARY SUPPLEMENT\UBIDECARENONE
     Dosage: 1 TABLET NIGHTLY
     Route: 048
  16. VITAMIN B12 [Concomitant]
     Active Substance: CYANOCOBALAMIN
     Dosage: 500 MICROGRAM, QD
     Route: 048
  17. PEPCID [Concomitant]
     Active Substance: FAMOTIDINE
     Dosage: 20 MILLIGRAM, QD
     Route: 048
  18. COZAAR [Concomitant]
     Active Substance: LOSARTAN POTASSIUM
     Dosage: 100 MILLIGRAM, QD
     Route: 048
  19. GLUCOPHAGE XR [Concomitant]
     Active Substance: METFORMIN HYDROCHLORIDE
     Dosage: 500 MILLIGRAM, QD
     Route: 048
  20. VITAMINS [Concomitant]
     Active Substance: VITAMINS
     Dosage: 1 TABLET QD
     Route: 048
     Dates: start: 20240122
  21. ZOLOFT [Concomitant]
     Active Substance: SERTRALINE HYDROCHLORIDE
     Dosage: 150 MILLIGRAM, QD
     Route: 048
  22. ZOCOR [Concomitant]
     Active Substance: SIMVASTATIN
     Dosage: 20 MILLIGRAM, EVERY EVENING
     Route: 048
  23. LORAZEPAM [Concomitant]
     Active Substance: LORAZEPAM
     Dosage: 1 TABLET, QD
     Route: 048
     Dates: start: 20240122
  24. LOSARTAN [Concomitant]
     Active Substance: LOSARTAN
     Dosage: 1 TABLET, QD
     Route: 048
     Dates: start: 20240122
  25. SERTRALINE [Concomitant]
     Active Substance: SERTRALINE HYDROCHLORIDE
     Dosage: 1 CAPSULE, QD
     Route: 048
     Dates: start: 20240122
  26. SIMVASTATIN [Concomitant]
     Active Substance: SIMVASTATIN
     Dosage: 20 MG AM - 20 MG PM
     Dates: start: 20240122

REACTIONS (37)
  - Ventricular fibrillation [Fatal]
  - Immune-mediated myocarditis [Fatal]
  - Acute respiratory failure [Unknown]
  - Vena cava thrombosis [Unknown]
  - Delirium [Unknown]
  - Streptococcus test positive [Unknown]
  - Cardiac arrest [Unknown]
  - Pneumonitis aspiration [Unknown]
  - Bradycardia [Unknown]
  - Aortic valve incompetence [Unknown]
  - Gastrointestinal haemorrhage [Unknown]
  - Blood pressure increased [Unknown]
  - Acute kidney injury [Unknown]
  - Thrombocytopenia [Unknown]
  - Immune-mediated myasthenia gravis [Unknown]
  - Immune-mediated myositis [Unknown]
  - Hypotension [Unknown]
  - Liver function test increased [Unknown]
  - Pleural effusion [Unknown]
  - Catheterisation cardiac [Unknown]
  - Mixed incontinence [Not Recovered/Not Resolved]
  - Mass [Unknown]
  - Soft tissue swelling [Unknown]
  - Haematoma [Unknown]
  - Lung infiltration [Unknown]
  - Blood sodium increased [Unknown]
  - Blood potassium increased [Unknown]
  - Blood chloride increased [Unknown]
  - White blood cell count increased [Unknown]
  - Mean cell volume decreased [Unknown]
  - Blood urea increased [Not Recovered/Not Resolved]
  - Iron deficiency anaemia [Unknown]
  - Hyperglycaemia [Unknown]
  - Vision blurred [Unknown]
  - Blood calcium increased [Unknown]
  - Haematocrit decreased [Unknown]
  - Diarrhoea [Unknown]

NARRATIVE: CASE EVENT DATE: 20240101
